FAERS Safety Report 12133900 (Version 10)
Quarter: 2016Q4

REPORT INFORMATION
  Report Type: Report from Study
  Country: CA (occurrence: CA)
  Receive Date: 20160301
  Receipt Date: 20161017
  Transmission Date: 20170206
  Serious: Yes (Other)
  Sender: FDA-Public Use
  Company Number: CA-ROCHE-1474767

PATIENT
  Age: 49 Year
  Sex: Male
  Weight: 75 kg

DRUGS (6)
  1. ACTEMRA [Suspect]
     Active Substance: TOCILIZUMAB
     Indication: RHEUMATOID ARTHRITIS
     Route: 042
     Dates: start: 20140912
  2. AZATHIOPRINE. [Concomitant]
     Active Substance: AZATHIOPRINE
     Route: 065
  3. PREDNISONE. [Concomitant]
     Active Substance: PREDNISONE
     Route: 065
  4. LOSEC [Concomitant]
     Active Substance: OMEPRAZOLE
     Route: 065
  5. RAMIPRIL. [Concomitant]
     Active Substance: RAMIPRIL
     Route: 065
  6. PLAQUENIL [Concomitant]
     Active Substance: HYDROXYCHLOROQUINE SULFATE
     Route: 065

REACTIONS (38)
  - Rash [Not Recovered/Not Resolved]
  - Contusion [Unknown]
  - Increased tendency to bruise [Recovering/Resolving]
  - Lower respiratory tract infection [Recovering/Resolving]
  - Arthralgia [Not Recovered/Not Resolved]
  - Nasopharyngitis [Recovering/Resolving]
  - Skin irritation [Not Recovered/Not Resolved]
  - Fall [Unknown]
  - Oral herpes [Unknown]
  - Joint swelling [Recovered/Resolved]
  - Muscle strain [Recovering/Resolving]
  - Blood pressure diastolic increased [Unknown]
  - Tooth disorder [Unknown]
  - Device breakage [Recovered/Resolved]
  - Flatulence [Unknown]
  - Body temperature decreased [Unknown]
  - Foot deformity [Unknown]
  - Impaired healing [Unknown]
  - Localised infection [Unknown]
  - Skin abrasion [Unknown]
  - Infusion related reaction [Unknown]
  - Hypoaesthesia [Recovered/Resolved]
  - Weight increased [Recovering/Resolving]
  - Heart rate increased [Unknown]
  - Tooth fracture [Unknown]
  - Contusion [Recovered/Resolved]
  - Blood pressure increased [Unknown]
  - Abdominal pain upper [Unknown]
  - Rhinorrhoea [Recovering/Resolving]
  - Paraesthesia [Recovered/Resolved]
  - Blister [Unknown]
  - Weight decreased [Unknown]
  - Post procedural complication [Recovered/Resolved]
  - Oxygen saturation decreased [Unknown]
  - Tooth infection [Not Recovered/Not Resolved]
  - Muscle spasms [Not Recovered/Not Resolved]
  - Blood pressure diastolic increased [Unknown]
  - Cough [Recovering/Resolving]

NARRATIVE: CASE EVENT DATE: 20141010
